FAERS Safety Report 12588947 (Version 1)
Quarter: 2016Q3

REPORT INFORMATION
  Report Type: Spontaneous
  Country: US (occurrence: US)
  Receive Date: 20160725
  Receipt Date: 20160725
  Transmission Date: 20161109
  Serious: No
  Sender: FDA-Public Use
  Company Number: US-JNJFOC-20160612705

PATIENT
  Sex: Female

DRUGS (2)
  1. ZYRTEC [Suspect]
     Active Substance: CETIRIZINE HYDROCHLORIDE
     Indication: SEASONAL ALLERGY
     Dosage: STARTED A A FEW WEEKS AGO
     Route: 048
  2. ZYRTEC [Suspect]
     Active Substance: CETIRIZINE HYDROCHLORIDE
     Indication: DRUG HYPERSENSITIVITY
     Dosage: STARTED A A FEW WEEKS AGO
     Route: 048

REACTIONS (4)
  - Therapeutic response unexpected [Unknown]
  - Off label use [Recovered/Resolved]
  - Somnolence [Recovered/Resolved]
  - Product use issue [Recovered/Resolved]
